FAERS Safety Report 25658419 (Version 1)
Quarter: 2025Q3

REPORT INFORMATION
  Report Type: Spontaneous
  Country: EU (occurrence: EU)
  Receive Date: 20250808
  Receipt Date: 20250808
  Transmission Date: 20251021
  Serious: Yes (Other)
  Sender: TEVA
  Company Number: EU-TEVA-VS-3359697

PATIENT
  Age: 30 Year
  Sex: Female

DRUGS (1)
  1. OLANZAPINE [Suspect]
     Active Substance: OLANZAPINE
     Indication: Schizophrenia
     Dosage: (20 MG) IN THE EVENINGS
     Route: 065
     Dates: start: 202501, end: 202503

REACTIONS (9)
  - Restlessness [Unknown]
  - Musculoskeletal stiffness [Unknown]
  - Disturbance in attention [Unknown]
  - Brain fog [Not Recovered/Not Resolved]
  - Emotional poverty [Not Recovered/Not Resolved]
  - Akathisia [Unknown]
  - Aphantasia [Unknown]
  - Memory impairment [Unknown]
  - Adverse event [Unknown]

NARRATIVE: CASE EVENT DATE: 20250101
